FAERS Safety Report 8478944 (Version 5)
Quarter: 2013Q3

REPORT INFORMATION
  Report Type: Report from Study
  Country: CA (occurrence: CA)
  Receive Date: 20120327
  Receipt Date: 20130902
  Transmission Date: 20140515
  Serious: Yes (Death, Hospitalization)
  Sender: FDA-Public Use
  Company Number: CA-JNJFOC-20120309506

PATIENT
  Age: 46 Year
  Sex: Male
  Weight: 114 kg

DRUGS (6)
  1. USTEKINUMAB [Suspect]
     Indication: PSORIASIS
     Route: 058
     Dates: start: 20110815
  2. USTEKINUMAB [Suspect]
     Indication: PSORIASIS
     Route: 058
     Dates: start: 20120130
  3. FLEXERIL [Concomitant]
  4. ALTACE [Concomitant]
  5. HYDROCHLOROTHIAZIDE [Concomitant]
  6. NITROGLYCERIN [Concomitant]

REACTIONS (2)
  - Myeloid leukaemia [Fatal]
  - Blast crisis in myelogenous leukaemia [Fatal]
